FAERS Safety Report 9408908 (Version 2)
Quarter: 2013Q4

REPORT INFORMATION
  Report Type: Spontaneous
  Country: FR (occurrence: FR)
  Receive Date: 20130719
  Receipt Date: 20131002
  Transmission Date: 20140711
  Serious: Yes (Life-Threatening, Hospitalization)
  Sender: FDA-Public Use
  Company Number: FR-009507513-1307FRA009204

PATIENT
  Age: 7 Day
  Sex: Male
  Weight: 2 kg

DRUGS (2)
  1. PROGLICEM [Suspect]
     Indication: HYPOGLYCAEMIA NEONATAL
     Dosage: 10 MG/KG, QD
     Route: 048
     Dates: start: 20130604, end: 20130608
  2. GLUCAGEN [Concomitant]

REACTIONS (4)
  - Hyponatraemia [Recovered/Resolved]
  - Acute pulmonary oedema [Recovered/Resolved]
  - Pulmonary arterial hypertension [Recovered/Resolved]
  - Respiratory distress [Recovered/Resolved]
